FAERS Safety Report 5275414-0 (Version None)
Quarter: 2007Q2

REPORT INFORMATION
  Report Type: 
  Country: None (occurrence: None)
  Receive Date: 20070326
  Receipt Date: 20070314
  Transmission Date: 20071010
  Serious: Yes (Hospitalization, Other)
  Sender: FDA-Public Use
  Company Number: CA-JNJFOC-20070304286

PATIENT
  Sex: Male
  Weight: 52 kg

DRUGS (22)
  1. ETRAVIRINE [Suspect]
     Indication: HIV INFECTION
     Dosage: TEMPORARILY STOPPED
     Route: 048
  2. PREZISTA [Suspect]
     Route: 048
  3. PREZISTA [Suspect]
     Indication: HIV INFECTION
     Dosage: TEMPORARILY STOPPED
     Route: 048
  4. RITONAVIR [Concomitant]
     Indication: HIV INFECTION
     Dosage: TEMPORARILY STOPPED
     Route: 048
  5. TENOFOVIR DISOPROXIL FUMARATE [Concomitant]
     Indication: HIV INFECTION
     Route: 048
  6. STAVUDINE [Concomitant]
     Indication: HIV INFECTION
     Route: 048
  7. ETHAMBUTOL HYDROCHLORIDE [Concomitant]
     Indication: MYCOBACTERIUM AVIUM COMPLEX INFECTION
     Route: 048
  8. CLARITHROMYCIN [Concomitant]
     Indication: MYCOBACTERIUM AVIUM COMPLEX INFECTION
     Route: 048
  9. VALGANCICLOVIR HCL [Concomitant]
     Indication: CYTOMEGALOVIRUS CHORIORETINITIS
     Route: 048
  10. FOLIC ACID [Concomitant]
     Indication: FOLATE DEFICIENCY
     Route: 048
  11. SPIRONOLACTONE [Concomitant]
     Indication: ASCITES
     Route: 048
  12. PANCRELIPASE [Concomitant]
     Indication: DIARRHOEA
     Dosage: TAKEN WITH MEALS
     Route: 048
  13. AMITRYPTILLIN [Concomitant]
     Indication: SLEEP DISORDER
     Route: 048
  14. VITAMIN D [Concomitant]
     Indication: OSTEOPOROSIS
     Route: 048
  15. CALCIUM CARBONATE [Concomitant]
     Indication: OSTEOPOROSIS
     Route: 048
  16. CYCLOBENZAPRINE HCL [Concomitant]
     Indication: MUSCLE SPASMS
     Route: 048
  17. NAPROXEN [Concomitant]
     Indication: PAIN
     Dosage: TAKEN AS NEEDED
     Route: 048
  18. SEPTRA DS [Concomitant]
     Indication: ANTIFUNGAL PROPHYLAXIS
     Route: 048
  19. MIACAICIN [Concomitant]
     Indication: PAIN
     Route: 045
  20. LOPERAMIDE HCL [Concomitant]
     Indication: DIARRHOEA
     Route: 048
  21. TRAZODONE HCL [Concomitant]
     Indication: SLEEP DISORDER
     Route: 048
  22. TRAMACET [Concomitant]
     Indication: PAIN
     Dosage: AS NEEDED
     Route: 048

REACTIONS (4)
  - ASTHENIA [None]
  - DIARRHOEA [None]
  - HEPATIC CIRRHOSIS [None]
  - SPINAL FRACTURE [None]
